FAERS Safety Report 4900676-6 (Version None)
Quarter: 2006Q1

REPORT INFORMATION
  Report Type: 
  Country: None (occurrence: None)
  Receive Date: 20060203
  Receipt Date: 20060201
  Transmission Date: 20060701
  Serious: Yes (Hospitalization)
  Sender: FDA-Public Use
  Company Number: FR-JNJFOC-20051205586

PATIENT
  Age: 72 Year
  Sex: Female
  Weight: 50 kg

DRUGS (7)
  1. CAELYX [Suspect]
     Route: 042
  2. CARBOPLATIN [Suspect]
     Route: 042
  3. LEVOTHYROX [Concomitant]
  4. OGAST [Concomitant]
  5. AVLOCARDYL [Concomitant]
  6. FORLAX [Concomitant]
  7. TAXOL [Concomitant]

REACTIONS (4)
  - ERYTHEMA [None]
  - HEART RATE INCREASED [None]
  - IVTH NERVE PARALYSIS [None]
  - NEUROTOXICITY [None]
